FAERS Safety Report 13773785 (Version 2)
Quarter: 2017Q3

REPORT INFORMATION
  Report Type: Report from Study
  Country: US (occurrence: US)
  Receive Date: 20170720
  Receipt Date: 20170803
  Transmission Date: 20171127
  Serious: Yes (Hospitalization, Other)
  Sender: FDA-Public Use
  Company Number: US-BRISTOL-MYERS SQUIBB COMPANY-BMS-2017-062919

PATIENT
  Age: 64 Year
  Sex: Male
  Weight: 85 kg

DRUGS (11)
  1. NIVOLUMAB [Suspect]
     Active Substance: NIVOLUMAB
     Indication: PRODUCT USED FOR UNKNOWN INDICATION
     Dosage: 85 UNK, Q3WK
     Route: 065
     Dates: start: 20170310, end: 20170310
  2. IPILIMUMAB [Suspect]
     Active Substance: IPILIMUMAB
     Indication: PRODUCT USED FOR UNKNOWN INDICATION
     Dosage: 00 UNK, Q3WK
     Route: 065
     Dates: start: 20170421, end: 20170421
  3. NIVOLUMAB [Suspect]
     Active Substance: NIVOLUMAB
     Indication: PRODUCT USED FOR UNKNOWN INDICATION
     Dosage: 83 UNK, Q3WK
     Route: 065
     Dates: start: 20170526, end: 20170526
  4. IPILIMUMAB [Suspect]
     Active Substance: IPILIMUMAB
     Indication: PRODUCT USED FOR UNKNOWN INDICATION
     Dosage: 255 UNK, Q3WK
     Route: 065
     Dates: start: 20170331, end: 20170331
  5. NIVOLUMAB [Suspect]
     Active Substance: NIVOLUMAB
     Indication: PRODUCT USED FOR UNKNOWN INDICATION
     Dosage: 252 UNK, Q2WK
     Route: 065
     Dates: start: 20170612, end: 20170612
  6. IPILIMUMAB [Suspect]
     Active Substance: IPILIMUMAB
     Indication: PRODUCT USED FOR UNKNOWN INDICATION
     Dosage: 00 UNK, Q3WK
     Route: 065
     Dates: start: 20170505, end: 20170505
  7. NIVOLUMAB [Suspect]
     Active Substance: NIVOLUMAB
     Indication: PRODUCT USED FOR UNKNOWN INDICATION
     Dosage: 85 UNK, Q3WK
     Route: 065
     Dates: start: 20170331, end: 20170331
  8. IPILIMUMAB [Suspect]
     Active Substance: IPILIMUMAB
     Indication: PRODUCT USED FOR UNKNOWN INDICATION
     Dosage: 255 UNK, Q3WK
     Route: 065
     Dates: start: 20170310, end: 20170310
  9. NIVOLUMAB [Suspect]
     Active Substance: NIVOLUMAB
     Indication: PRODUCT USED FOR UNKNOWN INDICATION
     Dosage: 84 UNK, UNK
     Route: 065
     Dates: start: 20170505, end: 20170505
  10. NIVOLUMAB [Suspect]
     Active Substance: NIVOLUMAB
     Indication: PRODUCT USED FOR UNKNOWN INDICATION
     Dosage: 00 UNK, Q3WK
     Route: 065
     Dates: start: 20170421, end: 20170421
  11. IPILIMUMAB [Suspect]
     Active Substance: IPILIMUMAB
     Indication: PRODUCT USED FOR UNKNOWN INDICATION
     Dosage: 00 UNK, Q3WK
     Route: 065
     Dates: start: 20170526, end: 20170526

REACTIONS (1)
  - Thrombocytopenia [Not Recovered/Not Resolved]

NARRATIVE: CASE EVENT DATE: 20170710
